FAERS Safety Report 15098627 (Version 2)
Quarter: 2018Q3

REPORT INFORMATION
  Report Type: Spontaneous
  Country: US (occurrence: US)
  Receive Date: 20180702
  Receipt Date: 20180825
  Transmission Date: 20181010
  Serious: No
  Sender: FDA-Public Use
  Company Number: US-TEVA-2018-US-909173

PATIENT
  Age: 6 Year
  Sex: Male
  Weight: 15.87 kg

DRUGS (1)
  1. OXYBUTYNIN. [Suspect]
     Active Substance: OXYBUTYNIN CHLORIDE
     Indication: NEUROGENIC BLADDER
     Dosage: 3.9 MG, 1 PATCH EVERY 3 TO 4 DAYS
     Route: 062
     Dates: start: 201803

REACTIONS (5)
  - Off label use [Unknown]
  - Application site irritation [Unknown]
  - Application site rash [Unknown]
  - Product use issue [Unknown]
  - Product adhesion issue [Unknown]
